FAERS Safety Report 18699245 (Version 4)
Quarter: 2021Q1

REPORT INFORMATION
  Report Type: Report from Study
  Country: US (occurrence: US)
  Receive Date: 20210105
  Receipt Date: 20210312
  Transmission Date: 20210419
  Serious: Yes (Death, Other)
  Sender: FDA-Public Use
  Company Number: US-EMD SERONO-9210755

PATIENT
  Age: 53 Year
  Sex: Male

DRUGS (2)
  1. REBIF [Suspect]
     Active Substance: INTERFERON BETA-1A
     Indication: MULTIPLE SCLEROSIS
     Route: 058
     Dates: start: 20150316
  2. REBIF [Suspect]
     Active Substance: INTERFERON BETA-1A
     Dosage: 44 MICROGRAM/ 0.5 ML (MILLIITER).
     Route: 058
     Dates: start: 20200513, end: 2020

REACTIONS (3)
  - Pulmonary embolism [Unknown]
  - Death [Fatal]
  - Spinal operation [Unknown]

NARRATIVE: CASE EVENT DATE: 20201218
